FAERS Safety Report 11201508 (Version 1)
Quarter: 2015Q2

REPORT INFORMATION
  Report Type: Spontaneous
  Country: US (occurrence: US)
  Receive Date: 20150619
  Receipt Date: 20150619
  Transmission Date: 20150821
  Serious: Yes (Other)
  Sender: FDA-Public Use
  Company Number: US-TEVA-571536USA

PATIENT
  Age: 42 Year
  Sex: Female

DRUGS (5)
  1. PRILOSEC [Suspect]
     Active Substance: OMEPRAZOLE MAGNESIUM
     Route: 065
  2. SEROQUEL [Suspect]
     Active Substance: QUETIAPINE FUMARATE
     Route: 065
  3. POTASSION [Suspect]
     Active Substance: POTASSIUM CHLORIDE
     Route: 065
  4. ZOLOFT [Suspect]
     Active Substance: SERTRALINE HYDROCHLORIDE
     Route: 065
  5. FUROSEMIDE. [Suspect]
     Active Substance: FUROSEMIDE
     Route: 065

REACTIONS (5)
  - Post-traumatic stress disorder [Unknown]
  - Coma [Unknown]
  - Documented hypersensitivity to administered product [None]
  - Reaction to drug excipients [None]
  - Seizure [Unknown]

NARRATIVE: CASE EVENT DATE: 20051230
